FAERS Safety Report 4408229-3 (Version None)
Quarter: 2004Q3

REPORT INFORMATION
  Report Type: 
  Country: None (occurrence: None)
  Receive Date: 20040726
  Receipt Date: 20040726
  Transmission Date: 20050211
  Serious: No
  Sender: FDA-Public Use
  Company Number: None

PATIENT
  Age: 23 Year
  Sex: Male
  Weight: 119.296 kg

DRUGS (3)
  1. DEPAKENE [Suspect]
     Indication: BIPOLAR DISORDER
     Dosage: 1500MG LIQUID ORAL
     Route: 048
     Dates: start: 20021212, end: 20040315
  2. DEPAKENE [Suspect]
     Indication: MANIA
     Dosage: 1500MG LIQUID ORAL
     Route: 048
     Dates: start: 20021212, end: 20040315
  3. DEPAKOTE [Suspect]
     Indication: EPILEPSY
     Dosage: 1200MG PILL ORAL
     Route: 048
     Dates: start: 19911006, end: 20010125

REACTIONS (5)
  - CHOLELITHIASIS [None]
  - HEPATIC SIDEROSIS [None]
  - HEPATIC STEATOSIS [None]
  - OVERWEIGHT [None]
  - RETCHING [None]
